FAERS Safety Report 25051360 (Version 1)
Quarter: 2025Q1

REPORT INFORMATION
  Report Type: Report from Study
  Country: US (occurrence: US)
  Receive Date: 20250307
  Receipt Date: 20250307
  Transmission Date: 20250408
  Serious: Yes (Other)
  Sender: UCB
  Company Number: US-UCBSA-2025013024

PATIENT
  Sex: Female

DRUGS (1)
  1. ROTIGOTINE [Suspect]
     Active Substance: ROTIGOTINE
     Indication: Product used for unknown indication
     Dosage: 8 MILLIGRAM, ONCE DAILY (QD)

REACTIONS (1)
  - Blindness [Unknown]
